FAERS Safety Report 8544122-2 (Version None)
Quarter: 2012Q3

REPORT INFORMATION
  Report Type: 
  Country: None (occurrence: None)
  Receive Date: 20120727
  Receipt Date: 20120725
  Transmission Date: 20120928
  Serious: No
  Sender: FDA-Public Use
  Company Number: US-B.I. PHARMACEUTICALS,INC./RIDGEFIELD-2011-BP-11299BP

PATIENT
  Sex: Female

DRUGS (16)
  1. SPIRIVA [Suspect]
     Indication: CHRONIC OBSTRUCTIVE PULMONARY DISEASE
     Dosage: 18 MCG
     Route: 055
     Dates: start: 20100101
  2. SPIRIVA [Suspect]
     Indication: EMPHYSEMA
  3. PROPRANOLOL [Concomitant]
     Dosage: 80 MG
     Route: 048
     Dates: end: 20110417
  4. INDERAL [Concomitant]
     Indication: HYPERTENSION
  5. PROPRANOLOL [Concomitant]
     Dosage: 60 MG
     Route: 048
     Dates: start: 20110418
  6. CLORAZEPATE DIPOTASSIUM [Concomitant]
     Indication: ANXIETY
     Dosage: 22.5 MG
     Route: 048
     Dates: start: 19800101
  7. LEVOTHYROXINE SODIUM [Concomitant]
     Indication: HYPOTHYROIDISM
  8. INDERAL [Concomitant]
     Indication: ANXIETY
     Dosage: 60 MG
     Route: 048
     Dates: start: 19800101
  9. INDERAL [Concomitant]
     Indication: PALPITATIONS
  10. LEVOTHYROXINE SODIUM [Concomitant]
     Indication: THYROID DISORDER
     Dosage: 0.05 MG
     Route: 048
     Dates: start: 20080101
  11. INDERAL [Concomitant]
     Indication: CARDIAC DISORDER
  12. SYNTHROID [Concomitant]
     Indication: HYPOTHYROIDISM
     Dosage: 50 MCG
     Route: 048
  13. INDERAL [Concomitant]
     Indication: AORTIC VALVE PROLAPSE
  14. VENTOLIN [Concomitant]
     Indication: CHRONIC OBSTRUCTIVE PULMONARY DISEASE
     Route: 055
     Dates: start: 20110101
  15. TRANXENE [Concomitant]
     Indication: ANXIETY
     Dosage: 7.5 MG
     Route: 048
     Dates: start: 19780101
  16. ASPIRIN [Concomitant]
     Indication: CHEST PAIN

REACTIONS (20)
  - DYSPNOEA [None]
  - VISION BLURRED [None]
  - COUGH [None]
  - NAUSEA [None]
  - TEARFULNESS [None]
  - FATIGUE [None]
  - VISUAL ACUITY REDUCED [None]
  - INCORRECT DOSE ADMINISTERED [None]
  - HEADACHE [None]
  - DYSPHONIA [None]
  - EMPHYSEMA [None]
  - PARAESTHESIA [None]
  - ASTHENIA [None]
  - CHRONIC OBSTRUCTIVE PULMONARY DISEASE [None]
  - WEIGHT INCREASED [None]
  - TREMOR [None]
  - HEART RATE INCREASED [None]
  - CHEST DISCOMFORT [None]
  - ANXIETY [None]
  - HYPERHIDROSIS [None]
